FAERS Safety Report 6183850-3 (Version None)
Quarter: 2009Q2

REPORT INFORMATION
  Report Type: 
  Country: None (occurrence: None)
  Receive Date: 20090508
  Receipt Date: 20090428
  Transmission Date: 20091009
  Serious: Yes (Hospitalization)
  Sender: FDA-Public Use
  Company Number: US-ROCHE-626537

PATIENT
  Age: 50 Year
  Sex: Male

DRUGS (4)
  1. TORADOL [Suspect]
     Indication: DRUG USE FOR UNKNOWN INDICATION
     Route: 048
     Dates: start: 20090329
  2. AVELOX [Suspect]
     Indication: SINUSITIS
     Route: 048
     Dates: start: 20090329
  3. DIOVAN [Concomitant]
  4. ADVAIR HFA [Concomitant]

REACTIONS (6)
  - ANAPHYLACTIC SHOCK [None]
  - DYSPNOEA [None]
  - HYPOAESTHESIA [None]
  - HYPOTENSION [None]
  - ROAD TRAFFIC ACCIDENT [None]
  - SWOLLEN TONGUE [None]
